FAERS Safety Report 17026918 (Version 1)
Quarter: 2019Q4

REPORT INFORMATION
  Report Type: Report from Study
  Country: US (occurrence: US)
  Receive Date: 20191113
  Receipt Date: 20191113
  Transmission Date: 20200122
  Serious: Yes (Other)
  Sender: FDA-Public Use
  Company Number: US-UCBSA-2019038165

PATIENT
  Age: 64 Year
  Sex: Male
  Weight: 93 kg

DRUGS (4)
  1. VIMPAT [Suspect]
     Active Substance: LACOSAMIDE
     Indication: PRODUCT USED FOR UNKNOWN INDICATION
     Dosage: UNK
     Dates: start: 201502
  2. LEVETIRACETAM. [Suspect]
     Active Substance: LEVETIRACETAM
     Indication: EPILEPSY
     Dosage: 4000 MG DAILY
     Dates: start: 201106, end: 2019
  3. LEVETIRACETAM. [Suspect]
     Active Substance: LEVETIRACETAM
     Dosage: 3000 MG DAILY
     Dates: start: 20190710
  4. VIMPAT [Suspect]
     Active Substance: LACOSAMIDE
     Dosage: 100MG 1 TABLET IN THE AM AND 2 TABLETS IN THE PM

REACTIONS (6)
  - Intentional product misuse [Unknown]
  - Tonsillar disorder [Unknown]
  - Sleep disorder [Unknown]
  - Overdose [Unknown]
  - Renal disorder [Unknown]
  - Fatigue [Unknown]

NARRATIVE: CASE EVENT DATE: 201106
